FAERS Safety Report 5531797-5 (Version None)
Quarter: 2007Q4

REPORT INFORMATION
  Report Type: 
  Country: None (occurrence: None)
  Receive Date: 20071128
  Receipt Date: 20071128
  Transmission Date: 20080405
  Serious: Yes (Hospitalization)
  Sender: FDA-Public Use
  Company Number: None

PATIENT
  Age: 64 Year
  Sex: Female
  Weight: 65 kg

DRUGS (1)
  1. WARFARIN SODIUM [Suspect]
     Indication: CARDIOMYOPATHY
     Dosage: WARFARIN 5MG DAILY

REACTIONS (4)
  - DRUG HYPERSENSITIVITY [None]
  - EPISTAXIS [None]
  - HAEMOPTYSIS [None]
  - INTERNATIONAL NORMALISED RATIO INCREASED [None]
